FAERS Safety Report 10094214 (Version 1)
Quarter: 2014Q2

REPORT INFORMATION
  Report Type: Spontaneous
  Country: US (occurrence: None)
  Receive Date: 20140418
  Receipt Date: 20140418
  Transmission Date: 20141212
  Serious: Yes (Other)
  Sender: FDA-Public Use
  Company Number: UTC-047218

PATIENT
  Age: 64 Year
  Sex: Female

DRUGS (2)
  1. REMODULIN (10 MILLIGRAM/MILLILITERS, INJECTION FOR INFUSION) (TREPROSTINIL SODIUM) [Suspect]
     Indication: PULMONARY ARTERIAL HYPERTENSION
     Dosage: 77.76 UG/KG (0.054 UG/KG, 1 IN 1 MIN), SUBCUTANEOUS
     Route: 058
     Dates: start: 20090203
  2. REVATIO (SILDENAFIL CITRATE) [Concomitant]

REACTIONS (4)
  - Head injury [None]
  - Loss of consciousness [None]
  - Foot fracture [None]
  - Fall [None]
